FAERS Safety Report 4673737-7 (Version None)
Quarter: 2005Q2

REPORT INFORMATION
  Report Type: 
  Country: None (occurrence: None)
  Receive Date: 20050523
  Receipt Date: 20050516
  Transmission Date: 20051028
  Serious: Yes (Hospitalization)
  Sender: FDA-Public Use
  Company Number: 2005003130

PATIENT
  Age: 41 Year
  Sex: Female

DRUGS (2)
  1. GEODON [Suspect]
     Indication: PSYCHOTIC DISORDER
     Dosage: 160 MG (80 MG, 2 IN 1 D), ORAL
     Route: 048
     Dates: start: 20040804, end: 20041203
  2. KLONOPIN [Concomitant]

REACTIONS (3)
  - AGITATION [None]
  - HOSTILITY [None]
  - TREATMENT NONCOMPLIANCE [None]
